FAERS Safety Report 23584002 (Version 1)
Quarter: 2024Q1

REPORT INFORMATION
  Report Type: Spontaneous
  Country: US (occurrence: US)
  Receive Date: 20240301
  Receipt Date: 20240301
  Transmission Date: 20240410
  Serious: No
  Sender: FDA-Public Use
  Company Number: US-AMGEN-USASP2024036821

PATIENT
  Sex: Female

DRUGS (3)
  1. REPATHA [Suspect]
     Active Substance: EVOLOCUMAB
     Indication: Blood cholesterol abnormal
     Dosage: 140 MILLIGRAM, Q2WK
     Route: 065
     Dates: start: 2023, end: 20240201
  2. UBIQUINOL [Concomitant]
     Active Substance: UBIQUINOL
     Dosage: UNK
     Route: 065
  3. UBIQUINOL [Concomitant]
     Active Substance: UBIQUINOL
     Route: 065

REACTIONS (10)
  - Dizziness [Unknown]
  - Anxiety [Recovered/Resolved]
  - Influenza like illness [Unknown]
  - Palpitations [Unknown]
  - Nasopharyngitis [Unknown]
  - Paraesthesia [Unknown]
  - Feeling abnormal [Unknown]
  - Computerised tomogram heart abnormal [Unknown]
  - Blood glucose abnormal [Unknown]
  - Blood insulin increased [Unknown]
